FAERS Safety Report 12043751 (Version 1)
Quarter: 2016Q1

REPORT INFORMATION
  Report Type: Report from Study
  Country: US (occurrence: US)
  Receive Date: 20160208
  Receipt Date: 20160208
  Transmission Date: 20160526
  Serious: No
  Sender: FDA-Public Use
  Company Number: US-ABBVIE-15P-163-1364685-00

PATIENT
  Sex: Male

DRUGS (1)
  1. HUMIRA [Suspect]
     Active Substance: ADALIMUMAB
     Indication: RHEUMATOID ARTHRITIS
     Route: 065
     Dates: start: 201310

REACTIONS (6)
  - Musculoskeletal stiffness [Unknown]
  - Drug ineffective [Unknown]
  - Injection site erythema [Unknown]
  - Pain [Unknown]
  - Injection site swelling [Unknown]
  - Fatigue [Unknown]
